FAERS Safety Report 4846333-6 (Version None)
Quarter: 2005Q4

REPORT INFORMATION
  Report Type: 
  Country: None (occurrence: None)
  Receive Date: 20051202
  Receipt Date: 20051202
  Transmission Date: 20060501
  Serious: Yes (Other)
  Sender: FDA-Public Use
  Company Number: None

PATIENT
  Age: 59 Year
  Sex: Female

DRUGS (2)
  1. PERCOCET [Suspect]
     Indication: CARPAL TUNNEL SYNDROME
     Dosage: PO (10/325) 1-2 TID PRN
     Route: 048
  2. PERCOCET [Suspect]
     Indication: OSTEOARTHRITIS
     Dosage: PO (10/325) 1-2 TID PRN
     Route: 048

REACTIONS (3)
  - NAUSEA [None]
  - THERAPEUTIC RESPONSE UNEXPECTED WITH DRUG SUBSTITUTION [None]
  - VOMITING [None]
